FAERS Safety Report 25931207 (Version 1)
Quarter: 2025Q4

REPORT INFORMATION
  Report Type: Spontaneous
  Country: US (occurrence: None)
  Receive Date: 20251016
  Receipt Date: 20251016
  Transmission Date: 20260117
  Serious: Yes (Hospitalization)
  Sender: FDA-CTU
  Company Number: None

PATIENT
  Age: 89 Year
  Sex: Female

DRUGS (1)
  1. LENALIDOMIDE [Suspect]
     Active Substance: LENALIDOMIDE
     Indication: Hypergammaglobulinaemia benign monoclonal
     Dosage: OTHER FREQUENCY : DAILY FOR 21 DAYS ON, 7 DAYS OFF;?

REACTIONS (3)
  - Rash [None]
  - Swelling face [None]
  - Dyspnoea [None]
